FAERS Safety Report 6310723-5 (Version None)
Quarter: 2009Q3

REPORT INFORMATION
  Report Type: 
  Country: None (occurrence: None)
  Receive Date: 20090811
  Receipt Date: 20090728
  Transmission Date: 20100115
  Serious: Yes (Hospitalization)
  Sender: FDA-Public Use
  Company Number: 2009AL005008

PATIENT
  Age: 24 Year
  Sex: Female

DRUGS (1)
  1. FEVERALL [Suspect]
     Indication: PAIN
     Dosage: 11000 MG;
     Route: 054

REACTIONS (2)
  - DRUG DISPENSING ERROR [None]
  - OVERDOSE [None]
